FAERS Safety Report 11022801 (Version 1)
Quarter: 2015Q2

REPORT INFORMATION
  Report Type: Spontaneous
  Country: US (occurrence: US)
  Receive Date: 20150413
  Receipt Date: 20150413
  Transmission Date: 20150821
  Serious: No
  Sender: FDA-Public Use
  Company Number: US-ELI_LILLY_AND_COMPANY-US201503006534

PATIENT
  Sex: Male

DRUGS (1)
  1. ADCIRCA [Suspect]
     Active Substance: TADALAFIL
     Indication: RESPIRATORY DISORDER
     Dosage: UNK, QD
     Route: 065
     Dates: start: 201412

REACTIONS (2)
  - Drug ineffective [Unknown]
  - Diarrhoea [Unknown]
